FAERS Safety Report 6673370-1 (Version None)
Quarter: 2010Q2

REPORT INFORMATION
  Report Type: 
  Country: None (occurrence: None)
  Receive Date: 20100408
  Receipt Date: 20100218
  Transmission Date: 20101027
  Serious: Yes (Hospitalization, Other)
  Sender: FDA-Public Use
  Company Number: PHEH2005US01890

PATIENT
  Sex: Male
  Weight: 84.7 kg

DRUGS (25)
  1. ZOMETA [Suspect]
     Indication: MULTIPLE MYELOMA
     Dosage: 4 MG QMO
     Route: 042
     Dates: start: 20020610, end: 20041018
  2. AREDIA [Suspect]
     Indication: MULTIPLE MYELOMA
     Dosage: 90MG Q4WK
     Dates: start: 20010518, end: 20020610
  3. INFLUENZA VACCINE [Concomitant]
     Dates: start: 20041201
  4. VINCRISTINE [Concomitant]
     Dates: start: 20010101
  5. ADRIAMYCIN PFS [Concomitant]
     Dates: start: 20010101
  6. DECADRON [Concomitant]
     Dates: start: 20010101
  7. DECADRON [Concomitant]
     Dates: start: 20040101
  8. THALIDOMIDE [Concomitant]
  9. WELLBUTRIN [Concomitant]
  10. CALCIUM [Concomitant]
  11. MULTI-VITAMINS VITAFIT [Concomitant]
  12. LEVOFLOXACIN [Concomitant]
     Dosage: 500MG IV Q24H
     Route: 042
     Dates: start: 20071212
  13. METHYLPREDNISOLONE [Concomitant]
     Dosage: 125MG IV
     Route: 042
     Dates: start: 20071212
  14. ALBUTEROL SULFATE AND IPRATROPIUM BROMIDE [Concomitant]
     Dosage: UNK
     Dates: start: 20071212
  15. FLOMAX [Concomitant]
     Dosage: 0.4MG PO QD
     Route: 048
     Dates: start: 20071213
  16. VESICARE [Concomitant]
     Dosage: 5MG PO QD
     Dates: start: 20071213
  17. ZOVIRAX [Concomitant]
     Dosage: 400MG PO BID
     Dates: start: 20071212
  18. AUGMENTIN '125' [Concomitant]
     Dosage: 875MG PO BID
     Dates: start: 20071213
  19. REVLIMID [Concomitant]
     Dosage: 25MG PO QD
  20. ROBITUSSIN AC ^ROBINS^ [Concomitant]
     Dosage: 5ML PO Q6H PRN
     Dates: start: 20071214
  21. PROTONIX [Concomitant]
     Dosage: 40MG PO QD
  22. RADIATION THERAPY [Concomitant]
     Dosage: UNK
     Dates: end: 20010531
  23. COUMADIN [Concomitant]
     Indication: THROMBOSIS PROPHYLAXIS
  24. ALLOPURINOL [Concomitant]
     Dosage: 100 MG, QD
     Route: 048
  25. OXYGEN THERAPY [Concomitant]
     Route: 045

REACTIONS (68)
  - ALVEOLOPLASTY [None]
  - ANXIETY [None]
  - BACK PAIN [None]
  - BONE DEBRIDEMENT [None]
  - BONE DISORDER [None]
  - BONE LESION [None]
  - BONE MARROW FAILURE [None]
  - BONE MARROW TRANSPLANT [None]
  - BONE OPERATION [None]
  - BONE PAIN [None]
  - BRONCHITIS [None]
  - BUNDLE BRANCH BLOCK RIGHT [None]
  - CANDIDIASIS [None]
  - CENTRAL VENOUS CATHETERISATION [None]
  - CHEST PAIN [None]
  - CHRONIC OBSTRUCTIVE PULMONARY DISEASE [None]
  - DEFORMITY [None]
  - DIARRHOEA [None]
  - DIVERTICULUM [None]
  - DYSPNOEA [None]
  - EAR DISCOMFORT [None]
  - EMOTIONAL DISTRESS [None]
  - ERECTILE DYSFUNCTION [None]
  - EXOSTOSIS [None]
  - FISTULA [None]
  - GASTRIC POLYPS [None]
  - GASTRITIS [None]
  - GASTROOESOPHAGEAL REFLUX DISEASE [None]
  - GINGIVAL DISORDER [None]
  - GINGIVAL SWELLING [None]
  - HAEMORRHOIDS [None]
  - HEADACHE [None]
  - HERPES ZOSTER [None]
  - HYPERPLASIA [None]
  - HYPOGAMMAGLOBULINAEMIA [None]
  - HYPOTENSION [None]
  - HYPOXIA [None]
  - INFECTION [None]
  - INFLAMMATION [None]
  - INJURY [None]
  - JAW OPERATION [None]
  - LYMPHADENOPATHY [None]
  - NEUTROPENIA [None]
  - OBSTRUCTIVE AIRWAYS DISORDER [None]
  - OSTEOMYELITIS [None]
  - OSTEONECROSIS [None]
  - OXYGEN SUPPLEMENTATION [None]
  - PAIN [None]
  - PAIN IN JAW [None]
  - PANCYTOPENIA [None]
  - PHYSICAL DISABILITY [None]
  - PRIMARY SEQUESTRUM [None]
  - PYREXIA [None]
  - RASH [None]
  - RIB FRACTURE [None]
  - SINUS DISORDER [None]
  - SINUSITIS [None]
  - SKIN LESION [None]
  - SLEEP APNOEA SYNDROME [None]
  - SOFT TISSUE INFLAMMATION [None]
  - SPINAL COMPRESSION FRACTURE [None]
  - STOMATITIS [None]
  - TENDERNESS [None]
  - TOOTH ABSCESS [None]
  - TOOTH EXTRACTION [None]
  - TOOTH IMPACTED [None]
  - UPPER RESPIRATORY TRACT INFECTION [None]
  - WHEEZING [None]
